FAERS Safety Report 8328323-4 (Version None)
Quarter: 2012Q2

REPORT INFORMATION
  Report Type: 
  Country: None (occurrence: None)
  Receive Date: 20120502
  Receipt Date: 20120427
  Transmission Date: 20120825
  Serious: Yes (Other)
  Sender: FDA-Public Use
  Company Number: US-PFIZER INC-2012105282

PATIENT
  Sex: Male

DRUGS (1)
  1. DILANTIN-125 [Suspect]
     Dosage: 30 MG, UNK

REACTIONS (4)
  - ANTICONVULSANT DRUG LEVEL DECREASED [None]
  - POOR QUALITY DRUG ADMINISTERED [None]
  - CONVULSION [None]
  - GASTROENTERITIS VIRAL [None]
